FAERS Safety Report 10234199 (Version 1)
Quarter: 2014Q1

REPORT INFORMATION
  Report Type: Spontaneous
  Country: US (occurrence: None)
  Receive Date: 20140306
  Receipt Date: 20140306
  Transmission Date: 20141002
  Serious: Yes (Other)
  Sender: FDA-Public Use
  Company Number: 163-21880-13053125

PATIENT
  Age: 83 Year
  Sex: Male
  Weight: 68.04 kg

DRUGS (15)
  1. REVLIMID (LENALIDOMIDE) (10 MILLIGRAM, CAPSULES) [Suspect]
     Indication: MYELODYSPLASTIC SYNDROME
     Dosage: 10 MG, 28 IN 28 D, PO
     Route: 048
     Dates: start: 20130402
  2. LASIX (FUROSEMIDE) (TABLETS) [Concomitant]
  3. LIPITOR (ATORVASTATIN) (TABLETS) [Concomitant]
  4. CARVEDILOL (CARVEDILOL) (TABLETS) [Concomitant]
  5. FLOVENT (FLUTICASONE PROPIONATE) (UNKNOWN) [Concomitant]
  6. ALBUTEROL (SALBUTAMOL) (SOLUTION) [Concomitant]
  7. SPIRIVA (TIOTROPIUM BROMIDE) (UNKNOWN) [Concomitant]
  8. CALCITONIN SALMON (CALCITONIN, SALMON) (UNKNOWN) [Concomitant]
  9. ASPIRIN (ACETYLSALICYLIC ACID) (CHEWABLE TABLET) [Concomitant]
  10. LEVAQUIN (LEVOFLOXACIN) (TABLETS) [Concomitant]
  11. MUCINEX DM (TUSSIN DM) (TABLETS) [Concomitant]
  12. GUAIFENESIN (GUAIFENESIN) (UNKNOWN) [Concomitant]
  13. PANTOPRAZOLE (PANTOPRAZOLE) (UNKNOWN) [Concomitant]
  14. TIOTROPIUM (TIOTROPIUM) (UNKNOWN) [Concomitant]
  15. FLUCONAZOLE (FLUCONAZOLE) (UNKNOWN) [Concomitant]

REACTIONS (7)
  - Chronic obstructive pulmonary disease [None]
  - Renal disorder [None]
  - Rash [None]
  - Dyspnoea [None]
  - Neck pain [None]
  - Constipation [None]
  - Pain in extremity [None]
